FAERS Safety Report 19890771 (Version 2)
Quarter: 2021Q4

REPORT INFORMATION
  Report Type: Report from Study
  Country: JP (occurrence: JP)
  Receive Date: 20210927
  Receipt Date: 20211215
  Transmission Date: 20220304
  Serious: Yes (Other)
  Sender: FDA-Public Use
  Company Number: JP-002147023-NVSJ2020JP006117

PATIENT

DRUGS (6)
  1. RUXOLITINIB [Suspect]
     Active Substance: RUXOLITINIB
     Indication: Polycythaemia vera
     Dosage: 10 MG, BID
     Route: 048
     Dates: start: 20190801, end: 20190925
  2. RUXOLITINIB [Suspect]
     Active Substance: RUXOLITINIB
     Dosage: 5 MG, BID
     Route: 048
     Dates: start: 20190926, end: 20210325
  3. RUXOLITINIB [Suspect]
     Active Substance: RUXOLITINIB
     Dosage: 5 MG, QD
     Route: 048
     Dates: start: 20210326
  4. HYDREA [Concomitant]
     Active Substance: HYDROXYUREA
     Indication: Polycythaemia vera
     Dosage: 500 MG
     Route: 048
     Dates: end: 20200226
  5. HYDREA [Concomitant]
     Active Substance: HYDROXYUREA
     Indication: White blood cell count increased
     Dosage: 500 MG, QOD
     Route: 048
     Dates: start: 20210715
  6. HYDREA [Concomitant]
     Active Substance: HYDROXYUREA
     Indication: Platelet count increased

REACTIONS (6)
  - Anaemia [Recovering/Resolving]
  - Lymphocyte count decreased [Unknown]
  - Red blood cell morphology abnormal [Unknown]
  - Platelet count increased [Recovered/Resolved]
  - White blood cell count increased [Not Recovered/Not Resolved]
  - Inappropriate schedule of product administration [Unknown]

NARRATIVE: CASE EVENT DATE: 20210325
